FAERS Safety Report 8837404 (Version 1)
Quarter: 2012Q4

REPORT INFORMATION
  Report Type: 
  Country: GB (occurrence: GB)
  Receive Date: 20121012
  Receipt Date: 20121012
  Transmission Date: 20130627
  Serious: Yes (Other)
  Sender: FDA-Public Use
  Company Number: PHFR2012GB003951

PATIENT
  Sex: Male
  Weight: 95 kg

DRUGS (7)
  1. TEGRETOL [Suspect]
     Indication: EPILEPSY
     Dosage: 800 mg daily
     Route: 048
  2. TEGRETOL [Suspect]
     Route: 048
  3. QUETIAPINE [Concomitant]
     Indication: POST-TRAUMATIC STRESS DISORDER
     Dosage: 125 mg, Daily
     Route: 048
  4. PHENOBARBITAL [Concomitant]
     Indication: POST-TRAUMATIC STRESS DISORDER
     Dosage: 180 mg daily
     Route: 048
  5. CO-CODAMOL [Concomitant]
     Indication: PAIN
     Route: 048
  6. DICLOFENAC [Concomitant]
     Indication: PAIN
     Dosage: 150 mg daily
     Route: 048
  7. ROSUVASTATIN [Concomitant]
     Indication: BLOOD CHOLESTEROL INCREASED
     Dosage: 40 mg, UNK
     Route: 048

REACTIONS (3)
  - Grand mal convulsion [Unknown]
  - Convulsion [Recovering/Resolving]
  - General physical health deterioration [Unknown]
